FAERS Safety Report 19841781 (Version 4)
Quarter: 2021Q4

REPORT INFORMATION
  Report Type: Report from Study
  Country: None (occurrence: GR)
  Receive Date: 20210915
  Receipt Date: 20211029
  Transmission Date: 20220303
  Serious: Yes (Other)
  Sender: FDA-Public Use
  Company Number: GR-ABBVIE-21K-066-4076981-00

PATIENT
  Age: 62 Year
  Sex: Male
  Weight: 100 kg

DRUGS (8)
  1. CARBIDOPA\LEVODOPA [Suspect]
     Active Substance: CARBIDOPA\LEVODOPA
     Indication: Parkinson^s disease
     Dosage: MORNING DOSE: 10 ML; CONTINUOUS RATE: 2.7 ML/H; EXTRA DOSE: 3 ML
     Route: 050
     Dates: start: 20150531
  2. CARBIDOPA\LEVODOPA [Suspect]
     Active Substance: CARBIDOPA\LEVODOPA
  3. PRAMIPEXOLE [Concomitant]
     Active Substance: PRAMIPEXOLE
     Indication: Parkinson^s disease
     Dosage: 1X1 (EVENING)
     Route: 048
  4. PRAMIPEXOLE [Concomitant]
     Active Substance: PRAMIPEXOLE
     Dosage: 1X1 (MORNING)
     Route: 048
  5. CIPRALEX [Concomitant]
     Active Substance: ESCITALOPRAM OXALATE
     Indication: Depression
     Route: 048
  6. REMERON [Concomitant]
     Active Substance: MIRTAZAPINE
     Indication: Depression
     Route: 048
  7. SINEMET [Concomitant]
     Active Substance: CARBIDOPA\LEVODOPA
     Indication: Parkinson^s disease
     Route: 048
  8. BENSERAZIDE HYDROCHLORIDE\LEVODOPA [Concomitant]
     Active Substance: BENSERAZIDE HYDROCHLORIDE\LEVODOPA
     Indication: Parkinson^s disease
     Dosage: (200+50)MG
     Route: 048
     Dates: end: 201809

REACTIONS (6)
  - Embedded device [Not Recovered/Not Resolved]
  - Device difficult to use [Recovered/Resolved]
  - Stoma site infection [Unknown]
  - Stoma site discharge [Recovered/Resolved]
  - Stoma site erythema [Recovered/Resolved]
  - Complication of device removal [Unknown]

NARRATIVE: CASE EVENT DATE: 20210101
